FAERS Safety Report 13299340 (Version 3)
Quarter: 2017Q3

REPORT INFORMATION
  Report Type: Spontaneous
  Country: CA (occurrence: CA)
  Receive Date: 20170306
  Receipt Date: 20170712
  Transmission Date: 20171127
  Serious: Yes (Death)
  Sender: FDA-Public Use
  Company Number: CA-SA-2017SA034162

PATIENT
  Age: 29 Year
  Sex: Female
  Weight: 54 kg

DRUGS (5)
  1. NOVORAPID [Suspect]
     Active Substance: INSULIN ASPART
     Indication: SUICIDE ATTEMPT
     Dosage: DOSAGE FORM: SOLUTION SUBCUTANEOUS DOSE:260 UNIT(S)
     Route: 065
  2. LANTUS [Suspect]
     Active Substance: INSULIN GLARGINE
     Indication: TYPE 1 DIABETES MELLITUS
     Dosage: DOSAGE FORM: SOLUTION SUBCUTANEOUS DOSE:300 UNIT(S)
     Route: 051
  3. LANTUS [Suspect]
     Active Substance: INSULIN GLARGINE
     Indication: SUICIDE ATTEMPT
     Dosage: DOSAGE FORM: SOLUTION SUBCUTANEOUS DOSE:300 UNIT(S)
     Route: 051
  4. NOVORAPID [Suspect]
     Active Substance: INSULIN ASPART
     Indication: TYPE 1 DIABETES MELLITUS
     Dosage: DOSAGE FORM: SOLUTION SUBCUTANEOUS DOSE:260 UNIT(S)
     Route: 065
  5. PAROXETINE. [Concomitant]
     Active Substance: PAROXETINE

REACTIONS (4)
  - Intentional overdose [Fatal]
  - Unresponsive to stimuli [Fatal]
  - Completed suicide [Fatal]
  - Blood insulin increased [Fatal]
